FAERS Safety Report 4313547-3 (Version None)
Quarter: 2004Q1

REPORT INFORMATION
  Report Type: 
  Country: None (occurrence: None)
  Receive Date: 20040308
  Receipt Date: 20040224
  Transmission Date: 20041129
  Serious: Yes (Death, Hospitalization)
  Sender: FDA-Public Use
  Company Number: FR-GLAXOSMITHKLINE-B0325099A

PATIENT
  Age: 75 Year
  Sex: Male

DRUGS (8)
  1. DEROXAT [Suspect]
     Dosage: 10MG PER DAY
     Route: 048
     Dates: end: 20040129
  2. CELEBREX [Suspect]
     Dosage: 200MG PER DAY
     Route: 048
     Dates: end: 20040129
  3. ASPIRIN [Suspect]
     Dosage: 300MG PER DAY
     Route: 048
     Dates: end: 20040129
  4. DAFALGAN [Suspect]
     Dosage: 1G THREE TIMES PER DAY
     Route: 048
     Dates: end: 20040129
  5. TERCIAN [Suspect]
     Dosage: 12.5MG PER DAY
     Route: 048
     Dates: end: 20040129
  6. TILDIEM [Suspect]
     Dosage: 60MG THREE TIMES PER DAY
     Route: 048
     Dates: end: 20040129
  7. GINKOR FORT [Concomitant]
     Dosage: 2UNIT PER DAY
     Route: 048
  8. FORLAX [Concomitant]
     Dosage: .5UNIT PER DAY
     Route: 065

REACTIONS (13)
  - ANAEMIA [None]
  - ATRIAL FIBRILLATION [None]
  - BUNDLE BRANCH BLOCK RIGHT [None]
  - CARDIOMEGALY [None]
  - DRUG INTERACTION [None]
  - DUODENAL ULCER HAEMORRHAGE [None]
  - DYSPNOEA [None]
  - MYOCARDIAL ISCHAEMIA [None]
  - OEDEMA PERIPHERAL [None]
  - PULMONARY OEDEMA [None]
  - SHOCK [None]
  - SHOCK HAEMORRHAGIC [None]
  - TACHYCARDIA [None]
